FAERS Safety Report 5178662-3 (Version None)
Quarter: 2006Q4

REPORT INFORMATION
  Report Type: 
  Country: None (occurrence: None)
  Receive Date: 20061208
  Receipt Date: 20061127
  Transmission Date: 20070319
  Serious: Yes (Other)
  Sender: FDA-Public Use
  Company Number: BR-2006-037319

PATIENT
  Age: 50 Year
  Sex: Female

DRUGS (2)
  1. BETAFERON(INTERFERON BETA -1B) INJECTION, 250UG [Suspect]
     Indication: MULTIPLE SCLEROSIS
     Dosage: SUBCUTANEOUS
     Route: 058
     Dates: start: 20020101, end: 20051001
  2. COPAXONE [Suspect]
     Indication: MULTIPLE SCLEROSIS
     Dosage: SUBCUTANEOUS
     Route: 058

REACTIONS (5)
  - APHASIA [None]
  - MOTOR DYSFUNCTION [None]
  - MOVEMENT DISORDER [None]
  - NEOPLASM MALIGNANT [None]
  - NOSOCOMIAL INFECTION [None]
